FAERS Safety Report 4569747-0 (Version None)
Quarter: 2005Q1

REPORT INFORMATION
  Report Type: 
  Country: None (occurrence: None)
  Receive Date: 20050131
  Receipt Date: 20050119
  Transmission Date: 20050727
  Serious: Yes (Hospitalization)
  Sender: FDA-Public Use
  Company Number: 211335

PATIENT
  Age: 74 Year
  Sex: Male
  Weight: 60 kg

DRUGS (13)
  1. AVASTIN [Suspect]
     Indication: CARCINOID TUMOUR
     Dosage: 5 MG/KG, Q2W, INTRAVENOUS
     Route: 042
     Dates: start: 20041116, end: 20041214
  2. TEMOZOLOMIDE (TEMOZOLOMIDE) [Suspect]
     Indication: CARCINOID TUMOUR
     Dosage: 150 MG/M2, QD, ORAL
     Route: 048
     Dates: start: 20041116, end: 20041220
  3. ATIVAN [Concomitant]
  4. COMPAZINE [Concomitant]
  5. CREON [Concomitant]
  6. DOXAZOSIN MESYLATE [Concomitant]
  7. DTO (OPIUM) [Concomitant]
  8. LASIX [Concomitant]
  9. LISINOPRIL [Concomitant]
  10. OCTREOTIDE ACETATE [Concomitant]
  11. PROTONIX [Concomitant]
  12. MULTI-VITAMINS [Concomitant]
  13. DIGOXIN [Concomitant]

REACTIONS (30)
  - ABASIA [None]
  - ALANINE AMINOTRANSFERASE INCREASED [None]
  - ASPARTATE AMINOTRANSFERASE INCREASED [None]
  - ASTHENIA [None]
  - ATELECTASIS [None]
  - BLOOD ALKALINE PHOSPHATASE INCREASED [None]
  - BLOOD BILIRUBIN INCREASED [None]
  - BLOOD GLUCOSE INCREASED [None]
  - BRAIN SCAN ABNORMAL [None]
  - CANDIDIASIS [None]
  - CARDIAC ENZYMES INCREASED [None]
  - CARDIOMEGALY [None]
  - CEREBRAL ATROPHY [None]
  - CEREBRAL ISCHAEMIA [None]
  - CYANOSIS [None]
  - DEHYDRATION [None]
  - DIARRHOEA [None]
  - EYE DISORDER [None]
  - FEELING COLD [None]
  - HAEMATOCRIT DECREASED [None]
  - HYPOGLYCAEMIA [None]
  - HYPOTHYROIDISM [None]
  - MICTURITION URGENCY [None]
  - OPEN WOUND [None]
  - ORAL INTAKE REDUCED [None]
  - PERIPHERAL COLDNESS [None]
  - PITTING OEDEMA [None]
  - PLATELET COUNT DECREASED [None]
  - RENAL FAILURE [None]
  - RHABDOMYOLYSIS [None]
